FAERS Safety Report 7205205-2 (Version None)
Quarter: 2010Q4

REPORT INFORMATION
  Report Type: 
  Country: None (occurrence: None)
  Receive Date: 20101231
  Receipt Date: 20101021
  Transmission Date: 20110411
  Serious: Yes (Hospitalization)
  Sender: FDA-Public Use
  Company Number: 186003

PATIENT
  Age: 64 Year
  Sex: Female
  Weight: 68 kg

DRUGS (21)
  1. AVONEX [Suspect]
     Indication: MULTIPLE SCLEROSIS
     Route: 030
     Dates: start: 19980101, end: 20031101
  2. AVONEX [Suspect]
     Route: 030
     Dates: start: 20030101
  3. ZOLOFT [Concomitant]
  4. SYNTHROID [Concomitant]
  5. PREVACID [Concomitant]
  6. NEURONTIN [Concomitant]
  7. TEGRETOL [Concomitant]
  8. AMITRIPTYLINE [Concomitant]
  9. AMANTADINE [Concomitant]
  10. DITROPAN [Concomitant]
  11. NITROSTAT [Concomitant]
  12. OXYCONTIN [Concomitant]
  13. IMITREX [Concomitant]
  14. FIORICET [Concomitant]
  15. HYDROCORTISONE [Concomitant]
  16. GABAPENTIN [Concomitant]
  17. CARBAMAZEPINE [Concomitant]
  18. COLACE [Concomitant]
  19. DULCOLAX [Concomitant]
  20. MILK OF MAGNESIA [Concomitant]
  21. SERTRALINE HYDROCHLORIDE [Concomitant]

REACTIONS (8)
  - ABASIA [None]
  - COUGH [None]
  - FUNGAL SKIN INFECTION [None]
  - INFECTION [None]
  - INJECTION SITE CELLULITIS [None]
  - MUSCULOSKELETAL DISORDER [None]
  - NASOPHARYNGITIS [None]
  - PYOMYOSITIS [None]
